FAERS Safety Report 13879810 (Version 2)
Quarter: 2017Q4

REPORT INFORMATION
  Report Type: Report from Study
  Country: None (occurrence: US)
  Receive Date: 20170818
  Receipt Date: 20171006
  Transmission Date: 20180320
  Serious: Yes (Other)
  Sender: FDA-Public Use
  Company Number: US-ABBVIE-17K-163-1963552-00

PATIENT
  Age: 39 Year
  Sex: Female

DRUGS (7)
  1. MULTIVITAMIN [Concomitant]
     Active Substance: VITAMINS
     Indication: PRODUCT USED FOR UNKNOWN INDICATION
  2. COQ10 [Concomitant]
     Active Substance: UBIDECARENONE
     Indication: PRODUCT USED FOR UNKNOWN INDICATION
  3. HUMIRA [Suspect]
     Active Substance: ADALIMUMAB
     Route: 058
     Dates: start: 201707, end: 201709
  4. HUMIRA [Suspect]
     Active Substance: ADALIMUMAB
     Route: 058
     Dates: start: 201709
  5. HUMIRA [Suspect]
     Active Substance: ADALIMUMAB
     Indication: ANKYLOSING SPONDYLITIS
     Route: 058
     Dates: start: 201304, end: 201707
  6. ASPRIN [Concomitant]
     Active Substance: ASPIRIN
     Indication: PRODUCT USED FOR UNKNOWN INDICATION
  7. VITAMIN D3 [Concomitant]
     Active Substance: CHOLECALCIFEROL
     Indication: PRODUCT USED FOR UNKNOWN INDICATION

REACTIONS (8)
  - Postoperative thrombosis [Recovered/Resolved with Sequelae]
  - Wrong technique in product usage process [Unknown]
  - Urinary tract infection [Recovered/Resolved]
  - Ankylosing spondylitis [Recovering/Resolving]
  - Sinusitis [Recovered/Resolved]
  - Varicose vein [Recovered/Resolved with Sequelae]
  - Incorrect dose administered [Unknown]
  - Cystitis [Recovered/Resolved]

NARRATIVE: CASE EVENT DATE: 2015
